FAERS Safety Report 8880003 (Version 1)
Quarter: 2012Q4

REPORT INFORMATION
  Report Type: 
  Country: US (occurrence: US)
  Receive Date: 20121031
  Receipt Date: 20121031
  Transmission Date: 20130627
  Serious: Yes (Death, Other)
  Sender: FDA-Public Use
  Company Number: US-PURDUE-USA-2012-0094884

PATIENT
  Age: 42 Year
  Sex: Male

DRUGS (2)
  1. OXYCODONE HCL IMMEDIATE RELEASE (91-490) [Suspect]
     Indication: PRODUCT USED FOR UNKNOWN INDICATION
     Dosage: 30 mg, tid
     Route: 048
  2. BENZODIAZEPINE DERIVATIVES [Suspect]
     Indication: PRODUCT USED FOR UNKNOWN INDICATION
     Dosage: UNK UNK, see text

REACTIONS (2)
  - Death [Fatal]
  - Drug abuse [Unknown]
